FAERS Safety Report 4847568-9 (Version None)
Quarter: 2005Q4

REPORT INFORMATION
  Report Type: 
  Country: None (occurrence: None)
  Receive Date: 20051205
  Receipt Date: 20051118
  Transmission Date: 20060501
  Serious: Yes (Hospitalization, Other)
  Sender: FDA-Public Use
  Company Number: 2005EN000463

PATIENT
  Age: 60 Year

DRUGS (10)
  1. ABELCET [Suspect]
     Indication: ANTIFUNGAL PROPHYLAXIS
     Dosage: SEE IMAGE
     Route: 042
  2. TACROLIMUS (TACROLIMUS) [Suspect]
     Indication: IMMUNOSUPPRESSANT DRUG THERAPY
  3. PIPERACILLIN [Concomitant]
  4. SULBACTAM [Concomitant]
  5. CLARITHROMYCIN [Concomitant]
  6. ANTITHYMOCYTE [Concomitant]
  7. IMMUNOGLOBULIN (RABBIT) [Concomitant]
  8. TACROLIMUS [Concomitant]
  9. AZATHIOPRINE [Concomitant]
  10. CORTICOSTEROIDS [Concomitant]

REACTIONS (6)
  - DRUG INEFFECTIVE [None]
  - DRUG INTERACTION [None]
  - HAEMODIALYSIS [None]
  - NEPHROPATHY TOXIC [None]
  - PNEUMONIA ASPERGILLUS [None]
  - RENAL FAILURE [None]
